FAERS Safety Report 4646376-1 (Version None)
Quarter: 2005Q2

REPORT INFORMATION
  Report Type: 
  Country: None (occurrence: None)
  Receive Date: 20050422
  Receipt Date: 20050422
  Transmission Date: 20051028
  Serious: Yes (Hospitalization)
  Sender: FDA-Public Use
  Company Number: None

PATIENT
  Age: 63 Year
  Sex: Male
  Weight: 62 kg

DRUGS (21)
  1. SPIRONOLACTONE 100MG TAB [Suspect]
  2. GATIFLOXACIN [Concomitant]
  3. INSULIN REG HUMAN INJ [Concomitant]
  4. LEVOTHYROXINE SODIUM [Concomitant]
  5. THIAMINE [Concomitant]
  6. OMEPRAZOLE [Concomitant]
  7. METOPROLOL [Concomitant]
  8. SODIUM POLYSTYRENE SULFONATE [Concomitant]
  9. SULFAMETHOXAZOLE AND TRIMETHOPRIM DOUBLE STRENGTH [Concomitant]
  10. LACTULOSE [Concomitant]
  11. SODIUM POLYSTYRENE SULFONATE [Concomitant]
  12. HALOPERIDOL [Concomitant]
  13. RISPERIDONE [Concomitant]
  14. SULFAMETHOXAZOLE AND TRIMETHOPRIM DOUBLE STRENGTH [Concomitant]
  15. MAGNESIUM OXIDE [Concomitant]
  16. NICOTINE [Concomitant]
  17. TERAZOSIN [Concomitant]
  18. AMITRIPTYLINE HCL TAB [Concomitant]
  19. TRAMADOL HCL [Concomitant]
  20. IPRATROPIUM BROMIDE [Concomitant]
  21. ALBUTEROL [Concomitant]

REACTIONS (1)
  - HYPERKALAEMIA [None]
